FAERS Safety Report 8922611 (Version 3)
Quarter: 2012Q4

REPORT INFORMATION
  Report Type: 
  Country: GB (occurrence: GB)
  Receive Date: 20121123
  Receipt Date: 20121226
  Transmission Date: 20130627
  Serious: Yes (Hospitalization)
  Sender: FDA-Public Use
  Company Number: PHFR2012GB005981

PATIENT
  Age: 32 Year
  Sex: Male

DRUGS (2)
  1. CLOZARIL (CLOZAPINE) [Suspect]
     Indication: SCHIZOPHRENIA
     Dosage: 350 mg, (100 mg mane and 250 mg nocte)
     Route: 048
     Dates: start: 20111003
  2. CLOZARIL (CLOZAPINE) [Suspect]
     Dosage: 350 mg, (200 mg mane and 150 mg nocte)
     Route: 048
     Dates: start: 20121109

REACTIONS (3)
  - Malaise [Recovering/Resolving]
  - Incorrect dose administered [Unknown]
  - Somnolence [Unknown]
